FAERS Safety Report 5897107-9 (Version None)
Quarter: 2008Q3

REPORT INFORMATION
  Report Type: 
  Country: None (occurrence: None)
  Receive Date: 20080924
  Receipt Date: 20080605
  Transmission Date: 20090109
  Serious: Yes (Other)
  Sender: FDA-Public Use
  Company Number: US-ASTRAZENECA-2008UW11508

PATIENT
  Age: 27 Year
  Sex: Female
  Weight: 68.9 kg

DRUGS (7)
  1. SEROQUEL [Suspect]
     Indication: BIPOLAR DISORDER
     Route: 048
     Dates: start: 20030101
  2. SEROQUEL [Suspect]
     Indication: DEPRESSION
     Route: 048
     Dates: start: 20030101
  3. SEROQUEL [Suspect]
     Indication: INSOMNIA
     Route: 048
     Dates: start: 20030101
  4. WELLBUTRIN [Concomitant]
  5. NEURONTIN [Concomitant]
  6. TRAZODONE HCL [Concomitant]
  7. ATIVAN [Concomitant]

REACTIONS (1)
  - PANCREATITIS [None]
